FAERS Safety Report 4559103-3 (Version None)
Quarter: 2005Q1

REPORT INFORMATION
  Report Type: 
  Country: None (occurrence: None)
  Receive Date: 20050120
  Receipt Date: 20050120
  Transmission Date: 20050727
  Serious: Yes (Hospitalization)
  Sender: FDA-Public Use
  Company Number: None

PATIENT
  Age: 73 Year
  Sex: Male
  Weight: 75.3 kg

DRUGS (12)
  1. WARFARIN SODIUM [Suspect]
     Indication: DEEP VEIN THROMBOSIS
     Dosage: 5 MG DAILY X 6 DAYS 6 MG FRIDAYS CHRONIC
  2. ASPIRIN [Suspect]
     Indication: DEEP VEIN THROMBOSIS
     Dosage: 81 MG PO DAY CHRONIC
     Route: 048
  3. LANOXIN [Concomitant]
  4. PEPCID [Concomitant]
  5. INSULIN [Concomitant]
  6. LOPRESSOR [Concomitant]
  7. M.V.I. [Concomitant]
  8. SEPTRA DS [Concomitant]
  9. ALTONEL PRE [Concomitant]
  10. PREDNISONE [Concomitant]
  11. LANTUS [Concomitant]
  12. ASPIRIN [Concomitant]

REACTIONS (4)
  - CONDITION AGGRAVATED [None]
  - HAEMATURIA [None]
  - INTERNATIONAL NORMALISED RATIO INCREASED [None]
  - PNEUMONIA [None]
